FAERS Safety Report 8899941 (Version 1)
Quarter: 2012Q4

REPORT INFORMATION
  Report Type: 
  Country: FR (occurrence: FR)
  Receive Date: 20121109
  Receipt Date: 20121109
  Transmission Date: 20130627
  Serious: Yes (Hospitalization, Other)
  Sender: FDA-Public Use
  Company Number: PHHY2012FR102190

PATIENT
  Age: 43 Year
  Sex: Female

DRUGS (17)
  1. RASILEZ HCT [Suspect]
     Dosage: 1 DF (300 mg alis/ 25 mg HCT), Daily
     Dates: end: 20120903
  2. TRILEPTAL [Suspect]
     Dosage: 2 DF, BID
     Dates: end: 20120903
  3. INEXIUM [Suspect]
     Dosage: 1 DF, daily
     Dates: end: 20120903
  4. HYPERIUM [Suspect]
     Dosage: 1 DF, BID
     Route: 048
     Dates: end: 20120903
  5. TERCIAN [Suspect]
     Dosage: 1 DF, daily
     Dates: end: 20120903
  6. TERCIAN [Suspect]
     Dosage: UNK UKN, UNK
  7. RISPERDAL [Suspect]
     Dosage: 1 DF, BID
  8. RISPERDAL [Suspect]
     Dosage: decreased dosage
  9. RISPERDAL [Suspect]
     Dosage: reincreased dosage
  10. STILNOX [Concomitant]
     Dosage: 10 mg, UNK
     Route: 048
  11. ZANIDIP [Concomitant]
  12. CRESTOR [Concomitant]
  13. TEMERIT [Concomitant]
     Dosage: 5 mg, UNK
     Route: 048
  14. DESLORATADINE [Concomitant]
  15. ARTANE [Concomitant]
  16. HALDOL [Concomitant]
  17. SERESTA [Concomitant]

REACTIONS (7)
  - Hyponatraemia [Recovered/Resolved]
  - Abnormal behaviour [Unknown]
  - Confusional state [Recovered/Resolved]
  - Parkinsonism [Recovered/Resolved]
  - Bradycardia [Unknown]
  - Delusion [Unknown]
  - Hypokalaemia [Recovered/Resolved]
